FAERS Safety Report 5074394-0 (Version None)
Quarter: 2006Q3

REPORT INFORMATION
  Report Type: 
  Country: None (occurrence: None)
  Receive Date: 20060803
  Receipt Date: 20060724
  Transmission Date: 20061208
  Serious: Yes (Hospitalization)
  Sender: FDA-Public Use
  Company Number: FRWYE328224JUL06

PATIENT
  Age: 81 Year
  Sex: Female

DRUGS (9)
  1. EFFEXOR XR [Suspect]
     Dosage: 75 MG TOTAL DAILY, ORAL
     Route: 048
  2. PROPRANOLOL HYDROCHLORIDE [Suspect]
     Dosage: 30 MG 1X PER 1 DAY, ORAL
     Route: 048
  3. OMEPRAZOLE [Suspect]
     Dosage: 20 MG 1X PER 1 DAY, ORAL
     Route: 048
  4. ADANCOR (NICORANDIL) [Concomitant]
  5. OXAZEPAM [Concomitant]
  6. XANAX [Concomitant]
  7. ZOLPIDEM TARTRATE [Concomitant]
  8. CALCIDOSE (CALCIUM CARBONATE) [Concomitant]
  9. VITAMIN D [Concomitant]

REACTIONS (6)
  - DYSPNOEA [None]
  - GENERAL PHYSICAL HEALTH DETERIORATION [None]
  - LEUKOPENIA [None]
  - MONOPARESIS [None]
  - NEUTROPHIL COUNT DECREASED [None]
  - THROMBOCYTOPENIA [None]
